FAERS Safety Report 15744857 (Version 1)
Quarter: 2018Q4

REPORT INFORMATION
  Report Type: Spontaneous
  Country: GB (occurrence: GB)
  Receive Date: 20181220
  Receipt Date: 20181220
  Transmission Date: 20190205
  Serious: Yes (Other)
  Sender: FDA-Public Use
  Company Number: PHBS2005GB03057

PATIENT
  Age: 15 Year
  Sex: Male

DRUGS (7)
  1. CICLOSPORIN [Suspect]
     Active Substance: CYCLOSPORINE
     Indication: HEART TRANSPLANT
     Dosage: 350 MG, QD
     Route: 048
  2. AZATHIOPRINE. [Suspect]
     Active Substance: AZATHIOPRINE
     Indication: IMMUNOSUPPRESSION
     Dosage: UNK
     Route: 065
     Dates: end: 200305
  3. PREDNISOLONE. [Concomitant]
     Active Substance: PREDNISOLONE
     Indication: PRODUCT USED FOR UNKNOWN INDICATION
     Dosage: 5 MG, UNK (ALTERNATE DAYS)
     Route: 065
  4. CICLOSPORIN [Suspect]
     Active Substance: CYCLOSPORINE
     Indication: IMMUNOSUPPRESSION
  5. EMOLLIENTS AND PROTECTIVES [Concomitant]
     Active Substance: UNSPECIFIED INGREDIENT
     Indication: DERMATITIS
     Dosage: UNK
     Route: 061
  6. MYCOPHENOLATE MOFETIL. [Suspect]
     Active Substance: MYCOPHENOLATE MOFETIL
     Indication: HEART TRANSPLANT
     Dosage: 1 G, QD
     Route: 065
     Dates: start: 200305, end: 200312
  7. METHYLPREDNISOLONE. [Concomitant]
     Active Substance: METHYLPREDNISOLONE
     Indication: HEART TRANSPLANT REJECTION
     Dosage: UNK
     Route: 065

REACTIONS (8)
  - Post transplant lymphoproliferative disorder [Recovering/Resolving]
  - Skin mass [Recovering/Resolving]
  - Lymphoproliferative disorder [Unknown]
  - Epstein-Barr virus infection [Unknown]
  - Gingival disorder [Unknown]
  - Skin atrophy [Unknown]
  - Lymphomatoid papulosis [Recovering/Resolving]
  - Heart transplant rejection [Recovered/Resolved]

NARRATIVE: CASE EVENT DATE: 2003
